APPROVED DRUG PRODUCT: PROMETHAZINE HYDROCHLORIDE
Active Ingredient: PROMETHAZINE HYDROCHLORIDE
Strength: 12.5MG
Dosage Form/Route: TABLET;ORAL
Application: A040712 | Product #002 | TE Code: AB
Applicant: KVK TECH INC
Approved: May 4, 2007 | RLD: No | RS: No | Type: RX